FAERS Safety Report 9174531 (Version 2)
Quarter: 2013Q1

REPORT INFORMATION
  Report Type: Spontaneous
  Country: ES (occurrence: ES)
  Receive Date: 20130320
  Receipt Date: 20130327
  Transmission Date: 20140127
  Serious: Yes (Other)
  Sender: FDA-Public Use
  Company Number: ES-ELI_LILLY_AND_COMPANY-ES201303005048

PATIENT
  Age: 34 Year
  Sex: Female

DRUGS (2)
  1. PROZAC [Suspect]
     Indication: EATING DISORDER
     Dosage: 20 MG, BID
     Route: 048
     Dates: start: 20120619
  2. TOPAMAX [Concomitant]
     Dosage: 1 DF, UNKNOWN

REACTIONS (1)
  - Galactorrhoea [Unknown]
